FAERS Safety Report 16442850 (Version 8)
Quarter: 2020Q1

REPORT INFORMATION
  Report Type: Spontaneous
  Country: US (occurrence: US)
  Receive Date: 20190617
  Receipt Date: 20200220
  Transmission Date: 20200409
  Serious: Yes (Death, Hospitalization)
  Sender: FDA-Public Use
  Company Number: US-ACTELION-A-US2019-191785

PATIENT
  Age: 80 Year
  Sex: Female
  Weight: 43.99 kg

DRUGS (10)
  1. AMBRISENTAN [Concomitant]
     Active Substance: AMBRISENTAN
  2. UPTRAVI [Suspect]
     Active Substance: SELEXIPAG
     Dosage: 600 MCG, BID
     Route: 048
  3. ADCIRCA [Concomitant]
     Active Substance: TADALAFIL
  4. UPTRAVI [Suspect]
     Active Substance: SELEXIPAG
     Dosage: 800 MCG, BID
     Route: 048
  5. LETAIRIS [Concomitant]
     Active Substance: AMBRISENTAN
  6. TAMIFLU [Concomitant]
     Active Substance: OSELTAMIVIR PHOSPHATE
  7. UPTRAVI [Suspect]
     Active Substance: SELEXIPAG
     Dosage: 200 MCG, BID
     Route: 048
  8. UPTRAVI [Suspect]
     Active Substance: SELEXIPAG
     Indication: PULMONARY ARTERIAL HYPERTENSION
     Dosage: 800 MCG,AM / 600 MCG PM
     Route: 048
  9. UPTRAVI [Suspect]
     Active Substance: SELEXIPAG
     Dosage: 400 MCG, BID
     Route: 048
  10. ELIQUIS [Concomitant]
     Active Substance: APIXABAN

REACTIONS (11)
  - Pulmonary hypertension [Fatal]
  - Incorrect dose administered [Recovered/Resolved]
  - Diarrhoea [Recovered/Resolved]
  - Oxygen saturation decreased [Unknown]
  - Abdominal pain [Unknown]
  - Hospitalisation [Not Recovered/Not Resolved]
  - Iron deficiency anaemia [Unknown]
  - Dyspnoea [Unknown]
  - Unevaluable event [Unknown]
  - Transfusion [Unknown]
  - Nasopharyngitis [Unknown]

NARRATIVE: CASE EVENT DATE: 20190531
